FAERS Safety Report 4744037-1 (Version None)
Quarter: 2005Q3

REPORT INFORMATION
  Report Type: 
  Country: None (occurrence: None)
  Receive Date: 20050809
  Receipt Date: 20050726
  Transmission Date: 20060218
  Serious: Yes (Death, Hospitalization)
  Sender: FDA-Public Use
  Company Number: US-2005-014223

PATIENT
  Age: 69 Year
  Sex: Male
  Weight: 65.5 kg

DRUGS (9)
  1. LEUKINE [Suspect]
     Indication: COLONY STIMULATING FACTOR THERAPY
     Dosage: 250 + 125 UG/M2/D, D+6-ANC}1000, SUBCUTANEOUS
     Route: 058
     Dates: start: 20050510, end: 20050516
  2. LEUKINE [Suspect]
     Indication: COLONY STIMULATING FACTOR THERAPY
     Dosage: 250 + 125 UG/M2/D, D+6-ANC}1000, SUBCUTANEOUS
     Route: 058
     Dates: start: 20050618, end: 20050620
  3. LEUKINE [Suspect]
     Indication: COLONY STIMULATING FACTOR THERAPY
     Dosage: 250 + 125 UG/M2/D, D+6-ANC}1000, SUBCUTANEOUS
     Route: 058
     Dates: start: 20050621, end: 20050630
  4. CARMUSTINE [Suspect]
     Indication: BONE MARROW CONDITIONING REGIMEN
     Dosage: 963 MG/KG, INTRAVENOUS
     Route: 042
     Dates: start: 20050428, end: 20050428
  5. RITUXIMAB [Concomitant]
  6. ETOPOSIDE [Concomitant]
  7. CYCLOPHOSPHAMIDE [Concomitant]
  8. I.V. SOLUTIONS [Concomitant]
  9. GCSF-(GRANULOCYTE COLONY STIMULATING FACTOR) [Concomitant]

REACTIONS (7)
  - CARDIO-RESPIRATORY ARREST [None]
  - HYPOTENSION [None]
  - LUNG INFILTRATION [None]
  - MULTI-ORGAN FAILURE [None]
  - PLEURAL EFFUSION [None]
  - PULMONARY ALVEOLAR HAEMORRHAGE [None]
  - SEPSIS [None]
